FAERS Safety Report 10176447 (Version 2)
Quarter: 2014Q2

REPORT INFORMATION
  Report Type: Spontaneous
  Country: US (occurrence: US)
  Receive Date: 20140516
  Receipt Date: 20140529
  Transmission Date: 20141212
  Serious: Yes (Other)
  Sender: FDA-Public Use
  Company Number: US-FRI-1000067359

PATIENT
  Age: 57 Year
  Sex: Female

DRUGS (9)
  1. FETZIMA [Suspect]
     Indication: DEPRESSION
     Dosage: 20 MG
     Route: 048
     Dates: start: 20140303, end: 20140304
  2. FETZIMA [Suspect]
     Indication: ANXIETY
  3. FETZIMA [Suspect]
     Indication: DEPRESSION
     Dosage: 40 MG
     Route: 048
     Dates: start: 20140305, end: 20140425
  4. FETZIMA [Suspect]
     Indication: ANXIETY
  5. FETZIMA [Suspect]
     Indication: DEPRESSION
     Dosage: 20 MG
     Route: 048
     Dates: start: 20140426, end: 20140430
  6. FETZIMA [Suspect]
     Indication: ANXIETY
  7. FETZIMA [Suspect]
     Indication: DEPRESSION
     Dosage: 20 MG EVERY OTHER DAY
     Dates: start: 20140501, end: 20140506
  8. FETZIMA [Suspect]
     Indication: ANXIETY
  9. ESTRADIOL [Concomitant]
     Indication: HORMONE REPLACEMENT THERAPY

REACTIONS (2)
  - Keratitis [Recovered/Resolved]
  - Off label use [Recovered/Resolved]
